FAERS Safety Report 7345678-8 (Version None)
Quarter: 2011Q1

REPORT INFORMATION
  Report Type: 
  Country: None (occurrence: None)
  Receive Date: 20110310
  Receipt Date: 20110303
  Transmission Date: 20110831
  Serious: Yes (Other)
  Sender: FDA-Public Use
  Company Number: B0704120A

PATIENT
  Age: 10 Year
  Sex: Male

DRUGS (1)
  1. FLUNASE (JAPAN) [Suspect]
     Route: 045

REACTIONS (1)
  - INTRAOCULAR PRESSURE INCREASED [None]
